FAERS Safety Report 17546535 (Version 1)
Quarter: 2020Q1

REPORT INFORMATION
  Report Type: Spontaneous
  Country: US (occurrence: US)
  Receive Date: 20200309
  Receipt Date: 20200309
  Transmission Date: 20200409
  Serious: No
  Sender: FDA-Public Use
  Company Number: None

PATIENT
  Age: 71 Year
  Sex: Female

DRUGS (1)
  1. IBRANCE [Suspect]
     Active Substance: PALBOCICLIB
     Dosage: ?          OTHER DOSE:1 TABLET;?
     Route: 048
     Dates: start: 2016

REACTIONS (6)
  - Dry skin [None]
  - Diarrhoea [None]
  - Constipation [None]
  - Fall [None]
  - Fatigue [None]
  - Femur fracture [None]

NARRATIVE: CASE EVENT DATE: 20200309
